FAERS Safety Report 4433947-0 (Version None)
Quarter: 2004Q3

REPORT INFORMATION
  Report Type: 
  Country: None (occurrence: None)
  Receive Date: 20040825
  Receipt Date: 20040810
  Transmission Date: 20050211
  Serious: Yes (Hospitalization)
  Sender: FDA-Public Use
  Company Number: 2004-FF-00481FF

PATIENT
  Age: 68 Year
  Sex: Male

DRUGS (6)
  1. MICARDIS [Suspect]
     Dosage: PO
     Route: 048
  2. GLYBURIDE [Concomitant]
  3. HEXAQUINE (HEXAQUINE) [Concomitant]
  4. FENOFIBRATE [Concomitant]
  5. STAGID (METFORMIN EMBONATE) [Concomitant]
  6. TANAKAN (GINKGO BILOBA EXTRACT) [Concomitant]

REACTIONS (7)
  - BLOOD CREATININE INCREASED [None]
  - CONDITION AGGRAVATED [None]
  - DERMATITIS EXFOLIATIVE [None]
  - OEDEMA PERIPHERAL [None]
  - PSORIASIS [None]
  - SEPTIC SHOCK [None]
  - TOXIC SKIN ERUPTION [None]
